FAERS Safety Report 23487252 (Version 1)
Quarter: 2024Q1

REPORT INFORMATION
  Report Type: Spontaneous
  Country: US (occurrence: US)
  Receive Date: 20240206
  Receipt Date: 20240206
  Transmission Date: 20240409
  Serious: No
  Sender: FDA-Public Use
  Company Number: US-KARYOPHARM-2024KPT000032

PATIENT

DRUGS (15)
  1. XPOVIO [Suspect]
     Active Substance: SELINEXOR
     Indication: Plasma cell myeloma
     Dosage: 80 MG, WEEKLY
     Route: 048
     Dates: start: 20230807, end: 20240104
  2. MELOXICAM [Concomitant]
     Active Substance: MELOXICAM
  3. METFORMIN [Concomitant]
     Active Substance: METFORMIN HYDROCHLORIDE
  4. KYPROLIS [Concomitant]
     Active Substance: CARFILZOMIB
  5. ONDANSETRON [Concomitant]
     Active Substance: ONDANSETRON
  6. AMLODIPINE [Concomitant]
     Active Substance: AMLODIPINE BESYLATE
  7. OMEPRAZOLE [Concomitant]
     Active Substance: OMEPRAZOLE
  8. ATORVASTATIN [Concomitant]
     Active Substance: ATORVASTATIN
  9. BORTEZOMIB [Concomitant]
     Active Substance: BORTEZOMIB
  10. FLUTICASONE [Concomitant]
     Active Substance: FLUTICASONE
  11. ACYCLOVIR [Concomitant]
     Active Substance: ACYCLOVIR
  12. OLANZAPINE [Concomitant]
     Active Substance: OLANZAPINE
  13. GABAPENTIN [Concomitant]
     Active Substance: GABAPENTIN
  14. DEXAMETHASONE [Concomitant]
     Active Substance: DEXAMETHASONE
  15. DICLOFENAC [Concomitant]
     Active Substance: DICLOFENAC

REACTIONS (1)
  - Plasma cell myeloma [Unknown]

NARRATIVE: CASE EVENT DATE: 20240104
